FAERS Safety Report 16782477 (Version 1)
Quarter: 2019Q3

REPORT INFORMATION
  Report Type: Report from Study
  Country: CA (occurrence: CA)
  Receive Date: 20190906
  Receipt Date: 20190906
  Transmission Date: 20191005
  Serious: Yes (Other)
  Sender: FDA-Public Use
  Company Number: CA-NALPROPION PHARMACEUTICALS INC.-2019-008501

PATIENT

DRUGS (2)
  1. CONTRAVE [Suspect]
     Active Substance: BUPROPION HYDROCHLORIDE\NALTREXONE HYDROCHLORIDE
     Dosage: APPROXIMATELY 07/AUG/2019, 2 TABLETS DAILY
     Route: 048
     Dates: start: 201908
  2. CONTRAVE [Suspect]
     Active Substance: BUPROPION HYDROCHLORIDE\NALTREXONE HYDROCHLORIDE
     Indication: WEIGHT CONTROL
     Dosage: APPROXIMATELY 31/JUL/2019 TO 06/AUG/2019, 1 TABLET DAILY
     Route: 048
     Dates: start: 201907, end: 201908

REACTIONS (5)
  - Abdominal distension [Not Recovered/Not Resolved]
  - Dizziness [Unknown]
  - Tunnel vision [Unknown]
  - Flatulence [Not Recovered/Not Resolved]
  - Feeling abnormal [Unknown]

NARRATIVE: CASE EVENT DATE: 201908
